FAERS Safety Report 12650584 (Version 1)
Quarter: 2016Q3

REPORT INFORMATION
  Report Type: Spontaneous
  Country: US (occurrence: US)
  Receive Date: 20160815
  Receipt Date: 20160815
  Transmission Date: 20161109
  Serious: No
  Sender: FDA-Public Use
  Company Number: US-BEH-2016072173

PATIENT
  Age: 66 Year
  Sex: Female
  Weight: 72.56 kg

DRUGS (12)
  1. HIZENTRA [Suspect]
     Active Substance: HUMAN IMMUNOGLOBULIN G
     Indication: SELECTIVE IGG SUBCLASS DEFICIENCY
     Dosage: 8 G, QW
     Route: 058
     Dates: start: 20160224
  2. HIZENTRA [Suspect]
     Active Substance: HUMAN IMMUNOGLOBULIN G
     Indication: MONOCLONAL GAMMOPATHY
  3. VALSARTAN. [Concomitant]
     Active Substance: VALSARTAN
  4. EPIPEN [Concomitant]
     Active Substance: EPINEPHRINE
  5. ALPRAZOLAM. [Concomitant]
     Active Substance: ALPRAZOLAM
  6. DIPHENHYDRAMINE. [Concomitant]
     Active Substance: DIPHENHYDRAMINE
  7. PROVIGIL [Concomitant]
     Active Substance: MODAFINIL
  8. ARMOUR THYROID [Concomitant]
     Active Substance: THYROID, PORCINE
  9. HYDROCHLOROTHIAZIDE. [Concomitant]
     Active Substance: HYDROCHLOROTHIAZIDE
  10. ACETAMINOPHEN. [Concomitant]
     Active Substance: ACETAMINOPHEN
  11. VALACYCLOVIR [Concomitant]
     Active Substance: VALACYCLOVIR HYDROCHLORIDE
  12. SALINE                             /00075401/ [Concomitant]
     Active Substance: SODIUM CHLORIDE

REACTIONS (4)
  - Vomiting [Unknown]
  - Gastroenteritis viral [Unknown]
  - Nausea [Unknown]
  - Frequent bowel movements [Unknown]

NARRATIVE: CASE EVENT DATE: 20160412
